FAERS Safety Report 9957688 (Version 1)
Quarter: 2014Q1

REPORT INFORMATION
  Report Type: Report from Study
  Country: US (occurrence: US)
  Receive Date: 20140304
  Receipt Date: 20140304
  Transmission Date: 20141002
  Serious: No
  Sender: FDA-Public Use
  Company Number: US-ABBVIE-13P-163-1092299-00

PATIENT
  Age: 35 Year
  Sex: Female

DRUGS (5)
  1. HUMIRA [Suspect]
     Indication: PSORIASIS
     Dates: start: 20130507, end: 20130507
  2. HUMIRA [Suspect]
     Dates: start: 20130514
  3. CLOBETASOL [Concomitant]
     Indication: PSORIASIS
  4. NAPROSYN [Concomitant]
     Indication: SWELLING
  5. ACYCLOVIR [Concomitant]
     Indication: GENITAL HERPES

REACTIONS (2)
  - Drug effect incomplete [Not Recovered/Not Resolved]
  - Genital herpes [Recovered/Resolved]
